FAERS Safety Report 13555468 (Version 1)
Quarter: 2017Q2

REPORT INFORMATION
  Report Type: Spontaneous
  Country: US (occurrence: US)
  Receive Date: 20170517
  Receipt Date: 20170517
  Transmission Date: 20170830
  Serious: Yes (Death)
  Sender: FDA-Public Use
  Company Number: US-ALLERGAN-1719539US

PATIENT
  Sex: Female

DRUGS (1)
  1. BYSTOLIC [Suspect]
     Active Substance: NEBIVOLOL HYDROCHLORIDE
     Indication: HEART RATE INCREASED
     Dosage: 5 MG, QD
     Route: 048

REACTIONS (3)
  - Breast cancer [Fatal]
  - Off label use [Unknown]
  - Chronic obstructive pulmonary disease [Fatal]
